FAERS Safety Report 9495950 (Version 1)
Quarter: 2013Q3

REPORT INFORMATION
  Report Type: Spontaneous
  Country: US (occurrence: US)
  Receive Date: 20130904
  Receipt Date: 20130904
  Transmission Date: 20140515
  Serious: Yes (Hospitalization, Other)
  Sender: FDA-Public Use
  Company Number: US-MERCK-1308USA014909

PATIENT
  Age: 69 Year
  Sex: Male

DRUGS (4)
  1. PEGINTRON [Suspect]
     Indication: HEPATITIS C
     Dosage: REDIPEN
     Dates: start: 20130728, end: 2013
  2. PEGINTRON [Suspect]
     Dosage: REDIPEN
     Dates: start: 20130820
  3. REBETOL [Suspect]
     Indication: HEPATITIS C
     Dosage: UNK
     Route: 048
     Dates: start: 20130728, end: 2013
  4. REBETOL [Suspect]
     Dosage: UNK
     Route: 048
     Dates: start: 20130820

REACTIONS (4)
  - Gastric ulcer [Unknown]
  - Pain [Unknown]
  - Pain in extremity [Unknown]
  - Constipation [Unknown]
